FAERS Safety Report 8169187-1 (Version None)
Quarter: 2012Q1

REPORT INFORMATION
  Report Type: 
  Country: None (occurrence: None)
  Receive Date: 20120227
  Receipt Date: 20120214
  Transmission Date: 20120608
  Serious: Yes (Hospitalization)
  Sender: FDA-Public Use
  Company Number: JP-ASTRAZENECA-2012SE11418

PATIENT
  Age: 67 Year
  Sex: Male

DRUGS (3)
  1. AGENTS FOR LIVER DISEASE [Suspect]
     Dosage: DOSE UNKNOWN, HAD BEEN ADMINISTERED SINCE BEFORE NEXIUM (ESOMEPRAZOLE MAGNESIUM HYDRATE) WAS STARTED
     Route: 065
  2. INAVIR [Suspect]
     Indication: INFLUENZA
     Route: 055
     Dates: start: 20120212
  3. NEXIUM [Suspect]
     Indication: GASTROOESOPHAGEAL REFLUX DISEASE
     Route: 048
     Dates: start: 20120126, end: 20120213

REACTIONS (2)
  - RENAL FAILURE ACUTE [None]
  - HEPATITIS FULMINANT [None]
